FAERS Safety Report 6699899-8 (Version None)
Quarter: 2010Q2

REPORT INFORMATION
  Report Type: 
  Country: None (occurrence: None)
  Receive Date: 20100427
  Receipt Date: 20100427
  Transmission Date: 20101027
  Serious: Yes (Hospitalization)
  Sender: FDA-Public Use
  Company Number: None

PATIENT
  Sex: Female
  Weight: 135.7 kg

DRUGS (4)
  1. CISPLATIN [Suspect]
     Dosage: 185 MG
     Dates: end: 20100331
  2. ETOPOSIDE [Suspect]
     Dosage: 741 MG
     Dates: end: 20100402
  3. DECADRON [Concomitant]
  4. ULTRAM [Concomitant]

REACTIONS (9)
  - ABDOMINAL PAIN [None]
  - ANAEMIA [None]
  - ASTHENIA [None]
  - DIARRHOEA HAEMORRHAGIC [None]
  - DIZZINESS [None]
  - DUODENAL ULCER [None]
  - HYPOTENSION [None]
  - NAUSEA [None]
  - THROMBOCYTOPENIA [None]
